FAERS Safety Report 22383369 (Version 1)
Quarter: 2023Q2

REPORT INFORMATION
  Report Type: Other
  Country: US (occurrence: US)
  Receive Date: 20230530
  Receipt Date: 20230530
  Transmission Date: 20230722
  Serious: Yes (Other)
  Sender: FDA-Public Use
  Company Number: US-Bion-011649

PATIENT
  Age: 17 Year
  Sex: Male

DRUGS (1)
  1. DIPHENHYDRAMINE [Suspect]
     Active Substance: DIPHENHYDRAMINE
     Indication: Product used for unknown indication

REACTIONS (7)
  - Urinary retention [Unknown]
  - Tachycardia [Unknown]
  - Mucosal disorder [Unknown]
  - Vomiting [Unknown]
  - Agitation [Unknown]
  - Confusional state [Unknown]
  - Toxicity to various agents [Unknown]
